FAERS Safety Report 22000322 (Version 1)
Quarter: 2023Q1

REPORT INFORMATION
  Report Type: Spontaneous
  Country: US (occurrence: US)
  Receive Date: 20230216
  Receipt Date: 20230216
  Transmission Date: 20230417
  Serious: Yes (Hospitalization)
  Sender: FDA-Public Use
  Company Number: US-UPSHER-SMITH LABORATORIES, LLC-2023USL00123

PATIENT
  Sex: Female
  Weight: 5.612 kg

DRUGS (10)
  1. VIGADRONE [Suspect]
     Active Substance: VIGABATRIN
     Indication: Infantile spasms
     Dosage: 2.5 ML, 2X/DAY
     Route: 048
     Dates: start: 20230128, end: 2023
  2. VIGADRONE [Suspect]
     Active Substance: VIGABATRIN
     Dosage: 5 ML, 2X/DAY
     Route: 048
     Dates: start: 2023, end: 202302
  3. VIGADRONE [Suspect]
     Active Substance: VIGABATRIN
     Dosage: 7.5 ML, 2X/DAY
     Route: 048
     Dates: start: 202302
  4. KEPPRA [Concomitant]
     Active Substance: LEVETIRACETAM
  5. PHENOBARBITAL [Concomitant]
     Active Substance: PHENOBARBITAL
  6. FAMOTIDINE [Concomitant]
     Active Substance: FAMOTIDINE
  7. PANTOPRAZOLE [Concomitant]
     Active Substance: PANTOPRAZOLE
  8. LACTULOSE [Concomitant]
     Active Substance: LACTULOSE
  9. ALBUTEROL SULFATE [Concomitant]
     Active Substance: ALBUTEROL SULFATE
     Dosage: NEBS
  10. SODIUM CHLORIDE [Concomitant]
     Active Substance: SODIUM CHLORIDE
     Dosage: NEBS

REACTIONS (2)
  - Acute respiratory failure [Recovered/Resolved]
  - Heart rate decreased [Recovered/Resolved]

NARRATIVE: CASE EVENT DATE: 20230101
